FAERS Safety Report 17012490 (Version 1)
Quarter: 2019Q4

REPORT INFORMATION
  Report Type: Spontaneous
  Country: US (occurrence: US)
  Receive Date: 20191108
  Receipt Date: 20191108
  Transmission Date: 20200122
  Serious: No
  Sender: FDA-Public Use
  Company Number: US-009507513-1911USA000402

PATIENT
  Age: 52 Year
  Sex: Female

DRUGS (10)
  1. MERCAPTOPURINE. [Concomitant]
     Active Substance: MERCAPTOPURINE
     Indication: ACUTE LYMPHOCYTIC LEUKAEMIA REFRACTORY
     Dosage: UNK
  2. PREDNISOLONE. [Concomitant]
     Active Substance: PREDNISOLONE
     Indication: ACUTE LYMPHOCYTIC LEUKAEMIA REFRACTORY
     Dosage: UNK
  3. METHOTREXATE. [Concomitant]
     Active Substance: METHOTREXATE
     Indication: ACUTE LYMPHOCYTIC LEUKAEMIA REFRACTORY
     Dosage: UNK
  4. ISAVUCONAZONIUM [Concomitant]
     Active Substance: ISAVUCONAZONIUM
     Indication: FUNGAL INFECTION
     Dosage: UNK
  5. MEROPENEM. [Concomitant]
     Active Substance: MEROPENEM
     Indication: STENOTROPHOMONAS INFECTION
     Dosage: UNK
  6. CUBICIN [Suspect]
     Active Substance: DAPTOMYCIN
     Indication: STENOTROPHOMONAS INFECTION
     Dosage: UNK
  7. AMPHOTERICIN B. [Concomitant]
     Active Substance: AMPHOTERICIN B
     Indication: FUNGAL INFECTION
     Dosage: UNK
  8. CUBICIN [Suspect]
     Active Substance: DAPTOMYCIN
     Indication: BACTERAEMIA
  9. MEROPENEM. [Concomitant]
     Active Substance: MEROPENEM
     Indication: BACTERAEMIA
  10. VINCRISTINE [Concomitant]
     Active Substance: VINCRISTINE
     Indication: ACUTE LYMPHOCYTIC LEUKAEMIA REFRACTORY
     Dosage: UNK

REACTIONS (1)
  - Product use in unapproved indication [Unknown]
